FAERS Safety Report 25807132 (Version 1)
Quarter: 2025Q3

REPORT INFORMATION
  Report Type: Spontaneous
  Country: US (occurrence: None)
  Receive Date: 20250915
  Receipt Date: 20250915
  Transmission Date: 20251021
  Serious: Yes (Hospitalization)
  Sender: FDA-CTU
  Company Number: None

PATIENT
  Age: 59 Year
  Sex: Female

DRUGS (1)
  1. RINVOQ [Suspect]
     Active Substance: UPADACITINIB
     Indication: Psoriasis
     Dosage: TAKE 1 TABLET BY MOUTH DAILY AS DIRECTED.    ?
     Route: 048

REACTIONS (1)
  - Spinal operation [None]

NARRATIVE: CASE EVENT DATE: 20250910
